FAERS Safety Report 18077190 (Version 4)
Quarter: 2021Q3

REPORT INFORMATION
  Report Type: Spontaneous
  Country: FR (occurrence: FR)
  Receive Date: 20200727
  Receipt Date: 20210707
  Transmission Date: 20211014
  Serious: Yes (Death, Hospitalization)
  Sender: FDA-Public Use
  Company Number: FR-BAYER-2020-151934

PATIENT
  Age: 83 Year
  Sex: Female

DRUGS (12)
  1. BICARBONATE [Concomitant]
     Active Substance: SODIUM BICARBONATE
     Dosage: 3/D
  2. CEFEPIME [Concomitant]
     Active Substance: CEFEPIME HYDROCHLORIDE
     Dosage: 1G X 2
     Dates: start: 20200707
  3. VITRAKVI [Suspect]
     Active Substance: LAROTRECTINIB
     Indication: THYROID CANCER
     Dosage: 100 MG, BID
     Route: 048
     Dates: start: 202005, end: 20200628
  4. PARACETAMOL [Concomitant]
     Active Substance: ACETAMINOPHEN
     Indication: PAIN
     Dosage: 1 G X 3/D
  5. SOLUPRED [PREDNISOLONE] [Concomitant]
     Active Substance: PREDNISOLONE
     Dosage: 3 TABS IN THE MORNING/1 TAB AT NOON
  6. LANSOPRAZOLE. [Concomitant]
     Active Substance: LANSOPRAZOLE
     Dosage: 1 DF, QD
  7. L THYROXINE [Concomitant]
     Active Substance: LEVOTHYROXINE SODIUM
     Dosage: 20 DROPS PER DAY
  8. NACL [Concomitant]
     Active Substance: SODIUM CHLORIDE
     Dosage: 500 ML, QD
     Route: 042
  9. NUTRISON ENERGY MULTI FIBRE [Concomitant]
     Dosage: 1,500 ML/D IN 15H
  10. FUNGIZONE [Concomitant]
     Active Substance: AMPHOTERICIN B
     Dosage: 3/D
  11. VITRAKVI [Suspect]
     Active Substance: LAROTRECTINIB
     Indication: THYROID CANCER
     Dosage: 200 ML, QD
     Route: 048
     Dates: start: 20200701, end: 20200701
  12. LOVENOX [Concomitant]
     Active Substance: ENOXAPARIN SODIUM
     Dosage: 0.4S/C1/D

REACTIONS (5)
  - Dose calculation error [Recovered/Resolved]
  - Upper airway necrosis [Fatal]
  - Overdose [None]
  - Tracheal haemorrhage [Recovered/Resolved]
  - Incorrect dosage administered [Recovered/Resolved]

NARRATIVE: CASE EVENT DATE: 20200701
